FAERS Safety Report 9869303 (Version 2)
Quarter: 2014Q1

REPORT INFORMATION
  Report Type: Spontaneous
  Country: US (occurrence: US)
  Receive Date: 20140205
  Receipt Date: 20140205
  Transmission Date: 20141002
  Serious: Yes (Other)
  Sender: FDA-Public Use
  Company Number: US-RANBAXY-2011US-44946

PATIENT
  Age: 85 Year
  Sex: Female

DRUGS (6)
  1. RISPERIDONE [Suspect]
     Indication: SOMATIC DELUSION
     Dosage: 0.5MG/ DAY
     Route: 065
  2. QUETIAPINE [Suspect]
     Indication: SOMATIC DELUSION
     Dosage: 25MG/ DAY
     Route: 065
  3. QUETIAPINE [Suspect]
     Indication: SOMATIC DELUSION
     Dosage: 100 MG/DAY
     Route: 065
  4. PIMOZIDE [Suspect]
     Indication: SOMATIC DELUSION
     Dosage: 1MG, DAILY
     Route: 065
  5. DIPHENHYDRAMINE [Concomitant]
     Indication: PRODUCT USED FOR UNKNOWN INDICATION
     Dosage: 25 MG/ DAILY
     Route: 065
  6. CROTAMITON [Concomitant]
     Indication: PRODUCT USED FOR UNKNOWN INDICATION
     Route: 065

REACTIONS (3)
  - Disease recurrence [Recovered/Resolved]
  - Fatigue [Unknown]
  - Disease progression [Recovered/Resolved]
